FAERS Safety Report 7424330-4 (Version None)
Quarter: 2011Q2

REPORT INFORMATION
  Report Type: 
  Country: None (occurrence: None)
  Receive Date: 20110419
  Receipt Date: 20110414
  Transmission Date: 20111010
  Serious: Yes (Hospitalization)
  Sender: FDA-Public Use
  Company Number: US-B.I. PHARMACEUTICALS,INC./RIDGEFIELD-2011-BP-00757BP

PATIENT
  Age: 64 Year
  Sex: Female
  Weight: 158.75 kg

DRUGS (12)
  1. LASIX [Concomitant]
     Dosage: 20 MG
  2. FOSAMAX [Concomitant]
     Dosage: 10 MG
  3. PRADAXA [Suspect]
     Indication: ATRIAL FIBRILLATION
     Dosage: 300 MG
     Route: 048
     Dates: start: 20101226, end: 20110104
  4. NOVALOG [Concomitant]
     Dosage: 52 U
  5. LOPID [Concomitant]
     Dosage: 600 MG
  6. ZOCOR [Concomitant]
     Dosage: 20 MG
  7. ARIMIDEX [Concomitant]
     Dosage: 1 MG
  8. LOPRESSOR [Concomitant]
     Dosage: 100 MG
  9. CARDIZEM [Concomitant]
     Dosage: 120 MG
  10. NOVOLIN N [Concomitant]
     Dosage: 64 U
  11. METFORMIN [Concomitant]
     Dosage: 2000 MG
  12. PRADAXA [Suspect]
     Indication: HEART RATE INCREASED
     Dosage: 150 MG
     Route: 048

REACTIONS (4)
  - ABDOMINAL HERNIA [None]
  - ABDOMINAL PAIN [None]
  - GALLBLADDER DISORDER [None]
  - ABDOMINAL PAIN UPPER [None]
